FAERS Safety Report 6208578-2 (Version None)
Quarter: 2009Q2

REPORT INFORMATION
  Report Type: 
  Country: None (occurrence: None)
  Receive Date: 20090529
  Receipt Date: 20090520
  Transmission Date: 20091009
  Serious: Yes (Hospitalization)
  Sender: FDA-Public Use
  Company Number: US-ELI_LILLY_AND_COMPANY-US200905004263

PATIENT
  Sex: Male
  Weight: 95.238 kg

DRUGS (10)
  1. BYETTA [Suspect]
     Indication: TYPE 2 DIABETES MELLITUS
     Dosage: 10 UG, 2/D
     Route: 058
     Dates: start: 20060101, end: 20070101
  2. BYETTA [Suspect]
     Dosage: 5 UG, DAILY (1/D)
     Route: 058
     Dates: start: 20070101
  3. LANTUS [Concomitant]
     Indication: TYPE 2 DIABETES MELLITUS
     Dosage: UNK, UNKNOWN
  4. HUMULIN N [Concomitant]
     Indication: TYPE 2 DIABETES MELLITUS
     Dosage: UNK, UNKNOWN
     Dates: end: 20090401
  5. AVAPRO [Concomitant]
     Indication: HYPERTENSION
     Dosage: 100 MG, UNKNOWN
  6. AVAPRO [Concomitant]
     Dosage: 150 MG, UNKNOWN
  7. DIURETICS [Concomitant]
     Indication: HYPERTENSION
     Dosage: UNK, UNKNOWN
  8. ANDROGEL [Concomitant]
     Indication: TESTIS CANCER
     Dosage: UNK, UNKNOWN
  9. SYNTHROID [Concomitant]
     Indication: THYROID HORMONE REPLACEMENT THERAPY
     Dosage: UNK, UNKNOWN
  10. POTASSIUM CHLORIDE [Concomitant]
     Indication: MUSCLE SPASMS
     Dosage: UNK, UNKNOWN

REACTIONS (11)
  - ARTHRITIS [None]
  - BLOOD GLUCOSE DECREASED [None]
  - GOUT [None]
  - HIP ARTHROPLASTY [None]
  - HYPERHIDROSIS [None]
  - INJURY [None]
  - PALPITATIONS [None]
  - PROCEDURAL PAIN [None]
  - PROTEINURIA [None]
  - TREMOR [None]
  - WEIGHT DECREASED [None]
